FAERS Safety Report 20954392 (Version 2)
Quarter: 2022Q2

REPORT INFORMATION
  Report Type: Spontaneous
  Country: US (occurrence: None)
  Receive Date: 20220614
  Receipt Date: 20220615
  Transmission Date: 20220720
  Serious: No
  Sender: FDA-Public Use
  Company Number: US-MDD US Operations-MDD202107-001536

PATIENT
  Age: 69 Year
  Sex: Female

DRUGS (2)
  1. APOKYN [Suspect]
     Active Substance: APOMORPHINE HYDROCHLORIDE
     Indication: Parkinson^s disease
     Dosage: UPTO 0.2 ML/DOSE
     Route: 058
  2. NOURIANZ [Concomitant]
     Active Substance: ISTRADEFYLLINE

REACTIONS (2)
  - Freezing phenomenon [Unknown]
  - Dysgeusia [Unknown]
